FAERS Safety Report 23026499 (Version 1)
Quarter: 2023Q4

REPORT INFORMATION
  Report Type: Spontaneous
  Country: US (occurrence: US)
  Receive Date: 20231004
  Receipt Date: 20231004
  Transmission Date: 20240110
  Serious: No
  Sender: FDA-Public Use
  Company Number: US-BRISTOL-MYERS SQUIBB COMPANY-2023-139420

PATIENT
  Age: 81 Year
  Sex: Male

DRUGS (1)
  1. REVLIMID [Suspect]
     Active Substance: LENALIDOMIDE
     Indication: Lung neoplasm
     Dosage: QD X 21 DAYS ON, 7 DAYS OFF
     Route: 048

REACTIONS (3)
  - Diarrhoea [Unknown]
  - Upper respiratory tract infection [Unknown]
  - Off label use [Unknown]
